FAERS Safety Report 9781344 (Version 3)
Quarter: 2018Q2

REPORT INFORMATION
  Report Type: Spontaneous
  Country: NL (occurrence: NL)
  Receive Date: 20131224
  Receipt Date: 20180622
  Transmission Date: 20180711
  Serious: Yes (Hospitalization, Other)
  Sender: FDA-Public Use
  Company Number: NL-ASTRAZENECA-2013SE91406

PATIENT
  Age: 78 Year
  Sex: Male

DRUGS (6)
  1. METOPROLOL TARTRATE. [Concomitant]
     Active Substance: METOPROLOL TARTRATE
     Route: 048
  2. TICAGRELOR. [Interacting]
     Active Substance: TICAGRELOR
     Route: 048
     Dates: start: 20130924
  3. OMEPRAZOL [Concomitant]
     Active Substance: OMEPRAZOLE
     Route: 048
  4. EZETROL [Interacting]
     Active Substance: EZETIMIBE
     Route: 048
  5. PERINDOPRIL [Concomitant]
     Active Substance: PERINDOPRIL
     Route: 048
  6. ROSUVASTATIN. [Suspect]
     Active Substance: ROSUVASTATIN
     Route: 048

REACTIONS (14)
  - Drug level increased [Unknown]
  - Anal fissure [Unknown]
  - Constipation [Unknown]
  - Acute kidney injury [Recovering/Resolving]
  - Drug interaction [Unknown]
  - Myocardial infarction [Unknown]
  - Renal impairment [Unknown]
  - Rhabdomyolysis [Recovering/Resolving]
  - Haematochezia [Unknown]
  - Haematoma [Unknown]
  - Therapy cessation [Unknown]
  - Escherichia urinary tract infection [Unknown]
  - Renal tubular necrosis [Unknown]
  - Vomiting [Unknown]

NARRATIVE: CASE EVENT DATE: 20131028
